FAERS Safety Report 9934855 (Version 2)
Quarter: 2014Q1

REPORT INFORMATION
  Report Type: Spontaneous
  Country: US (occurrence: US)
  Receive Date: 20140228
  Receipt Date: 20140228
  Transmission Date: 20141002
  Serious: No
  Sender: FDA-Public Use
  Company Number: US-ASTRAZENECA-2011SE30340

PATIENT
  Age: 55 Year
  Sex: Female
  Weight: 83.5 kg

DRUGS (4)
  1. TOPROL XL [Suspect]
     Indication: HYPERTENSION
     Route: 048
     Dates: start: 2006
  2. ATACAND [Suspect]
     Indication: HYPERTENSION
     Route: 048
     Dates: start: 2007
  3. FUROSEMIDE [Concomitant]
     Indication: BLOOD PRESSURE ABNORMAL
  4. POTASSIUM [Concomitant]

REACTIONS (8)
  - Blood pressure increased [Unknown]
  - Somnolence [Unknown]
  - Fatigue [Unknown]
  - Lethargy [Unknown]
  - Chest discomfort [Unknown]
  - Dyspepsia [Unknown]
  - Bradycardia [Unknown]
  - Drug dose omission [Unknown]
